FAERS Safety Report 4661869-9 (Version None)
Quarter: 2005Q2

REPORT INFORMATION
  Report Type: 
  Country: None (occurrence: None)
  Receive Date: 20050513
  Receipt Date: 20050511
  Transmission Date: 20051028
  Serious: Yes (Hospitalization)
  Sender: FDA-Public Use
  Company Number: FR-MERCK-0505FRA00029

PATIENT
  Age: 77 Year
  Sex: Female

DRUGS (9)
  1. ZETIA [Suspect]
     Indication: HYPERCHOLESTEROLAEMIA
     Route: 048
     Dates: start: 20050401, end: 20050426
  2. LAMOTRIGINE [Suspect]
     Indication: CONVULSION
     Route: 048
     Dates: start: 20050401, end: 20050426
  3. TRIMETAZIDINE HYDROCHLORIDE [Suspect]
     Route: 048
     Dates: end: 20050426
  4. FUROSEMIDE [Suspect]
     Indication: CARDIOMYOPATHY
     Route: 048
     Dates: end: 20050426
  5. CLOPIDOGREL BISULFATE [Concomitant]
     Route: 048
  6. BISOPROLOL [Concomitant]
     Route: 048
  7. LEVOTHYROXINE SODIUM [Concomitant]
     Indication: HYPOTHYROIDISM
     Route: 048
  8. INSULIN [Concomitant]
     Indication: DIABETES MELLITUS
     Route: 058
  9. IRBESARTAN [Concomitant]
     Indication: HYPERTENSION
     Route: 048

REACTIONS (2)
  - ENCEPHALOPATHY [None]
  - HYPERAMMONAEMIA [None]
